FAERS Safety Report 21290316 (Version 1)
Quarter: 2022Q3

REPORT INFORMATION
  Report Type: Spontaneous
  Country: FR (occurrence: FR)
  Receive Date: 20220902
  Receipt Date: 20220902
  Transmission Date: 20221027
  Serious: Yes (Hospitalization, Other)
  Sender: FDA-Public Use
  Company Number: None

PATIENT
  Age: 14 Year
  Sex: Female

DRUGS (3)
  1. LYRICA [Suspect]
     Active Substance: PREGABALIN
     Dosage: 2 DF, DAILY; DOSE NOT SPECIFIED
     Route: 048
     Dates: start: 202205
  2. MIDOMAFETAMINE [Suspect]
     Active Substance: MIDOMAFETAMINE
     Dosage: 2 TIMES A WEEK; DOSE NOT SPECIFIED
     Route: 065
     Dates: start: 202205
  3. COCAINE [Suspect]
     Active Substance: COCAINE
     Dosage: NOT SPECIFIED
     Route: 065

REACTIONS (2)
  - Intentional product misuse [Unknown]
  - Drug abuse [Unknown]

NARRATIVE: CASE EVENT DATE: 20220501
